FAERS Safety Report 24895929 (Version 1)
Quarter: 2025Q1

REPORT INFORMATION
  Report Type: Spontaneous
  Country: US (occurrence: US)
  Receive Date: 20250128
  Receipt Date: 20250128
  Transmission Date: 20250409
  Serious: No
  Sender: UPSHER SMITH LABORATORIES
  Company Number: US-UPSHER-SMITH LABORATORIES, LLC-2024USL00102

PATIENT
  Sex: Male

DRUGS (1)
  1. ISOTRETINOIN [Suspect]
     Active Substance: ISOTRETINOIN
     Indication: Product used for unknown indication

REACTIONS (9)
  - Dermoid cyst [Unknown]
  - Acne [Unknown]
  - Scar [Not Recovered/Not Resolved]
  - Dermal cyst [Unknown]
  - Acne cystic [Unknown]
  - Cyst [Unknown]
  - Milia [Unknown]
  - Erythema [Unknown]
  - Unevaluable event [Unknown]
